FAERS Safety Report 4373492-4 (Version None)
Quarter: 2004Q1

REPORT INFORMATION
  Report Type: 
  Country: None (occurrence: None)
  Receive Date: 20040305
  Receipt Date: 20031117
  Transmission Date: 20041129
  Serious: Yes (Other)
  Sender: FDA-Public Use
  Company Number: 2003UW15132

PATIENT
  Age: 59 Year
  Sex: Female

DRUGS (6)
  1. CRESTOR [Suspect]
     Dosage: 5 MG PO
     Route: 048
     Dates: start: 20031101, end: 20031101
  2. FIORINAL [Concomitant]
  3. SOMA [Concomitant]
  4. TAGAMET [Concomitant]
  5. INDERAL [Concomitant]
  6. PLENDIL [Concomitant]

REACTIONS (1)
  - DRY SKIN [None]
